FAERS Safety Report 22153968 (Version 2)
Quarter: 2025Q1

REPORT INFORMATION
  Report Type: Report from Study
  Country: US (occurrence: US)
  Receive Date: 20230330
  Receipt Date: 20250321
  Transmission Date: 20250408
  Serious: Yes (Hospitalization, Other)
  Sender: BIOGEN
  Company Number: US-BIOGEN-2023BI01195305

PATIENT
  Age: 47 Year
  Sex: Female

DRUGS (1)
  1. VUMERITY [Suspect]
     Active Substance: DIROXIMEL FUMARATE
     Indication: Multiple sclerosis
     Route: 050
     Dates: start: 20210730

REACTIONS (6)
  - Fall [Recovered/Resolved]
  - Intervertebral disc protrusion [Unknown]
  - Visual impairment [Not Recovered/Not Resolved]
  - Gait disturbance [Unknown]
  - Flushing [Not Recovered/Not Resolved]
  - Inappropriate schedule of product administration [Unknown]

NARRATIVE: CASE EVENT DATE: 20230201
